FAERS Safety Report 8238680-5 (Version None)
Quarter: 2012Q1

REPORT INFORMATION
  Report Type: 
  Country: None (occurrence: None)
  Receive Date: 20120327
  Receipt Date: 20120322
  Transmission Date: 20120608
  Serious: No
  Sender: FDA-Public Use
  Company Number: US-BAYER-2012-029521

PATIENT

DRUGS (4)
  1. MOTRIN [Concomitant]
  2. ALEVE (CAPLET) [Suspect]
     Route: 048
  3. IBUPROFEN [Concomitant]
  4. TYLENOL REGULAR [Concomitant]

REACTIONS (1)
  - INSOMNIA [None]
